FAERS Safety Report 9593746 (Version 1)
Quarter: 2013Q4

REPORT INFORMATION
  Report Type: Spontaneous
  Country: US (occurrence: None)
  Receive Date: 20131002
  Receipt Date: 20131002
  Transmission Date: 20140711
  Serious: No
  Sender: FDA-Public Use
  Company Number: 2135225-2013-00097

PATIENT
  Age: 45 Year
  Sex: Female

DRUGS (1)
  1. ASCLERA [Suspect]
     Indication: SCLEROTHERAPY
     Dosage: 4 ML, ONE SESSION, INJ
     Dates: start: 20130909

REACTIONS (7)
  - Contusion [None]
  - Swelling [None]
  - Injection site erythema [None]
  - Embolia cutis medicamentosa [None]
  - Extravasation [None]
  - Injection site pain [None]
  - Skin lesion [None]
